FAERS Safety Report 9899091 (Version 1)
Quarter: 2014Q1

REPORT INFORMATION
  Report Type: Spontaneous
  Country: ES (occurrence: ES)
  Receive Date: 20140214
  Receipt Date: 20140214
  Transmission Date: 20141002
  Serious: Yes (Life-Threatening, Hospitalization)
  Sender: FDA-Public Use
  Company Number: ES-IPSEN BIOPHARMACEUTICALS, INC.-2014-0786

PATIENT
  Age: 76 Year
  Sex: Male

DRUGS (1)
  1. DYSPORT [Suspect]
     Indication: DYSTONIA
     Dosage: 1000 IU
     Route: 030
     Dates: start: 200907, end: 20130711

REACTIONS (1)
  - Atrial fibrillation [Recovered/Resolved with Sequelae]
